FAERS Safety Report 10778476 (Version 1)
Quarter: 2015Q1

REPORT INFORMATION
  Report Type: Report from Study
  Country: GB (occurrence: GB)
  Receive Date: 20150210
  Receipt Date: 20150210
  Transmission Date: 20150721
  Serious: Yes (Death, Hospitalization)
  Sender: FDA-Public Use
  Company Number: GB-ROCHE-1532465

PATIENT
  Age: 71 Year
  Sex: Male
  Weight: 94.4 kg

DRUGS (9)
  1. RANIBIZUMAB [Suspect]
     Active Substance: RANIBIZUMAB
     Indication: DIABETIC RETINAL OEDEMA
     Dosage: 0.5MG/0.05 ML
     Route: 050
     Dates: start: 20140529, end: 20140529
  2. SPIRONOLACTONE. [Concomitant]
     Active Substance: SPIRONOLACTONE
     Route: 065
     Dates: start: 20081016, end: 20150121
  3. GLYCOPYRRONIUM BROMIDE [Concomitant]
     Active Substance: GLYCOPYRRONIUM
     Route: 065
     Dates: end: 20150123
  4. RANIBIZUMAB [Suspect]
     Active Substance: RANIBIZUMAB
     Dosage: 0.5MG/0.05 ML
     Route: 050
     Dates: start: 20141108, end: 20141108
  5. WARFARIN [Concomitant]
     Active Substance: WARFARIN
     Route: 065
     Dates: start: 20000914, end: 20150123
  6. BUMETANIDE. [Concomitant]
     Active Substance: BUMETANIDE
     Route: 065
     Dates: start: 20080219, end: 20150121
  7. SALBUTAMOL [Concomitant]
     Active Substance: ALBUTEROL
     Route: 065
     Dates: start: 20100810, end: 20150123
  8. DIGOXIN. [Concomitant]
     Active Substance: DIGOXIN
     Route: 065
     Dates: start: 20001010, end: 20150123
  9. SERTRALINE HYDROCHLORIDE. [Concomitant]
     Active Substance: SERTRALINE HYDROCHLORIDE
     Route: 065
     Dates: start: 20100806, end: 20150123

REACTIONS (2)
  - Cardiac failure chronic [Fatal]
  - Pneumonia [Recovered/Resolved]

NARRATIVE: CASE EVENT DATE: 20150111
